FAERS Safety Report 5757594-3 (Version None)
Quarter: 2008Q2

REPORT INFORMATION
  Report Type: 
  Country: None (occurrence: None)
  Receive Date: 20080603
  Receipt Date: 20080519
  Transmission Date: 20081010
  Serious: Yes (Death)
  Sender: FDA-Public Use
  Company Number: IT-GENENTECH-261941

PATIENT

DRUGS (9)
  1. MABTHERA [Suspect]
     Indication: NON-HODGKIN'S LYMPHOMA
     Dosage: 375 MG/M2, UNK
  2. DOXORUBICIN HCL [Suspect]
     Indication: B-CELL LYMPHOMA
     Dosage: 75 MG/M2, UNK
  3. VINCRISTINE [Suspect]
     Indication: B-CELL LYMPHOMA
  4. PREDNISONE TAB [Suspect]
     Indication: B-CELL LYMPHOMA
  5. ETOPOSIDE [Suspect]
     Indication: B-CELL LYMPHOMA
     Dosage: 2 MG/M2, UNK
  6. CYCLOPHOSPHAMIDE [Suspect]
     Indication: B-CELL LYMPHOMA
     Dosage: 7 G/M2, UNK
  7. MITOXANTRONE [Suspect]
     Indication: B-CELL LYMPHOMA
     Dosage: 60 MG/M2, UNK
  8. MELPHALAN [Suspect]
     Indication: B-CELL LYMPHOMA
     Dosage: 180 MG/M2, UNK
  9. NEUPOGEN [Concomitant]
     Indication: DRUG USE FOR UNKNOWN INDICATION
     Dosage: 5 A?G/KG, UNK

REACTIONS (1)
  - BACTERIAL SEPSIS [None]
